FAERS Safety Report 10155684 (Version 1)
Quarter: 2014Q2

REPORT INFORMATION
  Report Type: Spontaneous
  Country: CH (occurrence: CH)
  Receive Date: 20140506
  Receipt Date: 20140506
  Transmission Date: 20141212
  Serious: Yes (Other)
  Sender: FDA-Public Use
  Company Number: PHHY2014CH054145

PATIENT
  Age: 18 Year
  Sex: Male

DRUGS (2)
  1. RITALIN [Suspect]
     Dosage: 10 MG, UNK
  2. RITALIN [Suspect]
     Dosage: 38 MG, UNK

REACTIONS (4)
  - Emotional disorder [Unknown]
  - Depression [Unknown]
  - Drug dependence [Unknown]
  - Drug withdrawal syndrome [Unknown]
